FAERS Safety Report 14836980 (Version 1)
Quarter: 2018Q2

REPORT INFORMATION
  Report Type: Spontaneous
  Country: ES (occurrence: ES)
  Receive Date: 20180502
  Receipt Date: 20180502
  Transmission Date: 20180711
  Serious: Yes (Other)
  Sender: FDA-Public Use
  Company Number: ES-TEVA-2018-ES-887374

PATIENT
  Age: 55 Year
  Sex: Male

DRUGS (2)
  1. TACROLIMUS (2694A) [Suspect]
     Active Substance: TACROLIMUS
     Route: 065
     Dates: start: 201709
  2. TIMOGLOBULINA 5MG/ML POWDER FOR SOLUTION FOR PERFUSION, 1 VIAL (ANTITHYMOCYTE IMMUNOGLOBULIN) [Interacting]
     Active Substance: THYMOCYTE IMMUNE GLOBULIN NOS
     Route: 065
     Dates: start: 201709, end: 201709

REACTIONS (2)
  - Drug interaction [Unknown]
  - Drug-induced liver injury [Recovered/Resolved]

NARRATIVE: CASE EVENT DATE: 20170926
